FAERS Safety Report 5057470-8 (Version None)
Quarter: 2006Q3

REPORT INFORMATION
  Report Type: 
  Country: None (occurrence: None)
  Receive Date: 20060721
  Receipt Date: 20051017
  Transmission Date: 20061208
  Serious: No
  Sender: FDA-Public Use
  Company Number: US-GLAXOSMITHKLINE-A0578474A

PATIENT
  Age: 66 Year
  Sex: Female
  Weight: 63.6 kg

DRUGS (8)
  1. AVANDIA [Suspect]
     Dosage: 8MG PER DAY
     Route: 048
     Dates: start: 20050901, end: 20050901
  2. VERAPAMIL [Concomitant]
     Dosage: 240MG TWICE PER DAY
  3. CLONIDINE [Concomitant]
     Dosage: .2MG FOUR TIMES PER DAY
  4. TOPROL-XL [Concomitant]
     Dosage: 100MG TWICE PER DAY
  5. TRICOR [Concomitant]
  6. SYNTHROID [Concomitant]
  7. HYDROCHLOROTHIAZIDE [Concomitant]
  8. LIPITOR [Concomitant]

REACTIONS (2)
  - DRUG INEFFECTIVE [None]
  - WEIGHT DECREASED [None]
